FAERS Safety Report 9351223 (Version 1)
Quarter: 2013Q2

REPORT INFORMATION
  Report Type: Spontaneous
  Country: KR (occurrence: KR)
  Receive Date: 20130617
  Receipt Date: 20130617
  Transmission Date: 20140414
  Serious: Yes (Death, Other)
  Sender: FDA-Public Use
  Company Number: KR-BAYER-2013-074178

PATIENT
  Age: 81 Year
  Sex: Female

DRUGS (1)
  1. ULTRAVIST [Suspect]
     Indication: ABDOMEN SCAN
     Dosage: 120 ML, UNK
     Route: 042
     Dates: start: 20130614, end: 20130614

REACTIONS (4)
  - Death [Fatal]
  - Vomiting [None]
  - Blood pressure decreased [None]
  - Heart rate decreased [None]
